FAERS Safety Report 20984570 (Version 1)
Quarter: 2022Q2

REPORT INFORMATION
  Report Type: Spontaneous
  Country: US (occurrence: None)
  Receive Date: 20220621
  Receipt Date: 20220621
  Transmission Date: 20220720
  Serious: No
  Sender: FDA-Public Use
  Company Number: US-ROCHE-2907315

PATIENT
  Age: 55 Year
  Sex: Female

DRUGS (3)
  1. XELODA [Suspect]
     Active Substance: CAPECITABINE
     Indication: Product used for unknown indication
     Route: 048
  2. HERCEPTIN [Suspect]
     Active Substance: TRASTUZUMAB
     Indication: Product used for unknown indication
     Route: 065
  3. TUKYSA [Suspect]
     Active Substance: TUCATINIB
     Indication: Breast cancer female
     Route: 065

REACTIONS (11)
  - Nausea [Unknown]
  - Abdominal distension [Unknown]
  - Muscle spasms [Unknown]
  - Dry mouth [Unknown]
  - Lip discolouration [Unknown]
  - Skin disorder [Unknown]
  - Constipation [Unknown]
  - Cardiac flutter [Unknown]
  - Body temperature increased [Unknown]
  - Blood pressure increased [Unknown]
  - Joint swelling [Unknown]
